FAERS Safety Report 25786031 (Version 1)
Quarter: 2025Q3

REPORT INFORMATION
  Report Type: Spontaneous
  Country: US (occurrence: None)
  Receive Date: 20250910
  Receipt Date: 20250910
  Transmission Date: 20251020
  Serious: Yes (Hospitalization)
  Sender: FDA-CTU
  Company Number: None

PATIENT
  Age: 4 Year
  Sex: Female
  Weight: 16 kg

DRUGS (3)
  1. CYCLOPHOSPHAMIDE [Suspect]
     Active Substance: CYCLOPHOSPHAMIDE
     Dates: start: 20250903
  2. FILGRASTIM [Suspect]
     Active Substance: FILGRASTIM
     Dates: start: 20250904
  3. TOPOTECAN [Suspect]
     Active Substance: TOPOTECAN HYDROCHLORIDE
     Dates: start: 20250903

REACTIONS (10)
  - Arterial disorder [None]
  - Pleural effusion [None]
  - Mediastinal shift [None]
  - Hypervolaemia [None]
  - Haematuria [None]
  - Tumour haemorrhage [None]
  - Renal disorder [None]
  - Platelet count decreased [None]
  - Haemoglobin decreased [None]
  - Blood pressure increased [None]

NARRATIVE: CASE EVENT DATE: 20250905
